FAERS Safety Report 13965793 (Version 2)
Quarter: 2017Q3

REPORT INFORMATION
  Report Type: Spontaneous
  Country: FR (occurrence: FR)
  Receive Date: 20170913
  Receipt Date: 20170926
  Transmission Date: 20171128
  Serious: Yes (Other)
  Sender: FDA-Public Use
  Company Number: FR-JNJFOC-20170911381

PATIENT
  Age: 55 Year
  Sex: Female
  Weight: 90 kg

DRUGS (6)
  1. METHOTREXATE. [Concomitant]
     Active Substance: METHOTREXATE
     Route: 058
     Dates: start: 2005
  2. STELARA [Suspect]
     Active Substance: USTEKINUMAB
     Indication: PSORIATIC ARTHROPATHY
     Route: 058
  3. KARDEGIC [Concomitant]
     Active Substance: ASPIRIN LYSINE
     Route: 048
     Dates: start: 20170703
  4. DOLIPRANE [Concomitant]
     Active Substance: ACETAMINOPHEN
     Route: 048
     Dates: start: 2005
  5. STELARA [Suspect]
     Active Substance: USTEKINUMAB
     Indication: PSORIASIS
     Route: 058
  6. METHOTREXATE. [Concomitant]
     Active Substance: METHOTREXATE
     Route: 058
     Dates: start: 20170704

REACTIONS (1)
  - Transient ischaemic attack [Recovered/Resolved]

NARRATIVE: CASE EVENT DATE: 20170720
